FAERS Safety Report 8839376 (Version 1)
Quarter: 2012Q4

REPORT INFORMATION
  Report Type: Spontaneous
  Country: US (occurrence: None)
  Receive Date: 20121012
  Receipt Date: 20121012
  Transmission Date: 20130627
  Serious: Yes (Death)
  Sender: FDA-Public Use
  Company Number: None

PATIENT
  Age: 58 Year
  Sex: Male
  Weight: 119.75 kg

DRUGS (2)
  1. ZITHROMAX [Suspect]
     Indication: BRONCHITIS
     Dates: start: 20120104, end: 20120104
  2. ZITHROMAX [Suspect]
     Indication: COUGH
     Dates: start: 20120104, end: 20120104

REACTIONS (3)
  - Chest pain [None]
  - Fall [None]
  - Cardiac arrest [None]
